FAERS Safety Report 6003213-0 (Version None)
Quarter: 2008Q4

REPORT INFORMATION
  Report Type: 
  Country: None (occurrence: None)
  Receive Date: 20081215
  Receipt Date: 20081215
  Transmission Date: 20090506
  Serious: No
  Sender: FDA-Public Use
  Company Number: None

PATIENT
  Age: 83 Year
  Sex: Male
  Weight: 72.6 kg

DRUGS (1)
  1. IBUPROFEN [Suspect]
     Dosage: 600 MG PRN PO
     Route: 048
     Dates: start: 20081022, end: 20081103

REACTIONS (2)
  - BLOOD CREATININE INCREASED [None]
  - BLOOD UREA INCREASED [None]
